FAERS Safety Report 10205409 (Version 1)
Quarter: 2014Q2

REPORT INFORMATION
  Report Type: Spontaneous
  Country: US (occurrence: US)
  Receive Date: 20140529
  Receipt Date: 20140529
  Transmission Date: 20141212
  Serious: No
  Sender: FDA-Public Use
  Company Number: US-SA-2014SA051771

PATIENT
  Sex: Female

DRUGS (2)
  1. LANTUS SOLOSTAR [Suspect]
     Indication: DIABETES MELLITUS
     Dosage: DOSE: 16 AM/25 PM
     Route: 065
  2. SOLOSTAR [Concomitant]
     Indication: DEVICE THERAPY

REACTIONS (2)
  - Drug dose omission [Unknown]
  - Drug administration error [Unknown]
